FAERS Safety Report 6748728-2 (Version None)
Quarter: 2010Q2

REPORT INFORMATION
  Report Type: 
  Country: None (occurrence: None)
  Receive Date: 20100601
  Receipt Date: 20100518
  Transmission Date: 20101027
  Serious: Yes (Other)
  Sender: FDA-Public Use
  Company Number: PHHY2010GB18919

PATIENT
  Sex: Male
  Weight: 115 kg

DRUGS (4)
  1. CLOZARIL [Suspect]
     Indication: PSYCHOTIC DISORDER
     Dosage: 200 MG/DAY
     Route: 048
     Dates: start: 20100320
  2. DIAZEPAM [Concomitant]
     Indication: ANXIETY
     Dosage: 10 MG, UNK
     Route: 048
     Dates: start: 20091130
  3. ZOPICLONE [Concomitant]
     Indication: SLEEP DISORDER
     Dosage: 7.5 MG, UNK
     Route: 048
     Dates: start: 20091130
  4. AMISULPRIDE [Concomitant]
     Dosage: UNK
     Dates: end: 20100511

REACTIONS (1)
  - DRUG ADMINISTRATION ERROR [None]
